FAERS Safety Report 8234639-2 (Version None)
Quarter: 2012Q1

REPORT INFORMATION
  Report Type: 
  Country: None (occurrence: None)
  Receive Date: 20120322
  Receipt Date: 20120314
  Transmission Date: 20120608
  Serious: Yes (Other)
  Sender: FDA-Public Use
  Company Number: 2012SP003467

PATIENT
  Age: 26 Year
  Sex: Female

DRUGS (5)
  1. MULTI-VITAMINS [Concomitant]
  2. IMPLANON [Suspect]
     Dosage: SC
     Route: 058
     Dates: start: 20070314, end: 20100208
  3. IMPLANON [Suspect]
     Dosage: SC
     Route: 058
     Dates: start: 20100208, end: 20120208
  4. IMPLANON [Suspect]
  5. ACETAMINOPHEN [Concomitant]

REACTIONS (9)
  - ABORTION SPONTANEOUS [None]
  - ECTOPIC PREGNANCY [None]
  - DEVICE INTERACTION [None]
  - ADNEXA UTERI MASS [None]
  - HEADACHE [None]
  - PREGNANCY WITH IMPLANT CONTRACEPTIVE [None]
  - VAGINAL HAEMORRHAGE [None]
  - PELVIC PAIN [None]
  - MATERNAL EXPOSURE DURING PREGNANCY [None]
